FAERS Safety Report 10734081 (Version 3)
Quarter: 2015Q1

REPORT INFORMATION
  Report Type: Spontaneous
  Country: JP (occurrence: JP)
  Receive Date: 20150123
  Receipt Date: 20150216
  Transmission Date: 20150721
  Serious: Yes (Other)
  Sender: FDA-Public Use
  Company Number: JP-GLAXOSMITHKLINE-JP2015JPN005367

PATIENT
  Sex: Male

DRUGS (1)
  1. GW685698 + GW642444 [Suspect]
     Active Substance: FLUTICASONE FUROATE\VILANTEROL TRIFENATATE
     Indication: ASTHMA
     Dosage: 1 DF, QD

REACTIONS (2)
  - Pulmonary mycosis [Unknown]
  - Pyrexia [Unknown]

NARRATIVE: CASE EVENT DATE: 20150120
